FAERS Safety Report 9638201 (Version 1)
Quarter: 2013Q4

REPORT INFORMATION
  Report Type: Spontaneous
  Country: US (occurrence: US)
  Receive Date: 20131022
  Receipt Date: 20131022
  Transmission Date: 20140711
  Serious: No
  Sender: FDA-Public Use
  Company Number: US-PFIZER INC-2013298967

PATIENT
  Age: 82 Year
  Sex: Female
  Weight: 40.82 kg

DRUGS (3)
  1. NORVASC [Suspect]
     Indication: HYPERTENSION
     Dosage: 10 MG, 2X/DAY
  2. NORVASC [Suspect]
     Dosage: 20 MG, 2X/DAY
  3. NORVASC [Suspect]
     Dosage: 10 MG, 2X/DAY

REACTIONS (3)
  - Off label use [Unknown]
  - Malaise [Unknown]
  - Blood pressure inadequately controlled [Unknown]
